FAERS Safety Report 5572990-5 (Version None)
Quarter: 2007Q4

REPORT INFORMATION
  Report Type: 
  Country: None (occurrence: None)
  Receive Date: 20071220
  Receipt Date: 20071203
  Transmission Date: 20080405
  Serious: Yes (Hospitalization)
  Sender: FDA-Public Use
  Company Number: ENTC2007-0351

PATIENT
  Age: 76 Year
  Sex: Male

DRUGS (3)
  1. STALEVO 100 [Suspect]
     Indication: PARKINSON'S DISEASE
     Dosage: 2DF X 4 ORAL
     Route: 048
  2. MIRAPEXIN [Suspect]
     Indication: PARKINSON'S DISEASE
     Dosage: 1DF X4 ORAL
     Route: 048
  3. ASPIRIN [Concomitant]

REACTIONS (3)
  - PULMONARY CONGESTION [None]
  - PULMONARY EMBOLISM [None]
  - PULMONARY HYPERTENSION [None]
